FAERS Safety Report 5940986-7 (Version None)
Quarter: 2008Q4

REPORT INFORMATION
  Report Type: 
  Country: None (occurrence: None)
  Receive Date: 20081104
  Receipt Date: 20081028
  Transmission Date: 20090506
  Serious: Yes (Other)
  Sender: FDA-Public Use
  Company Number: PHHY2008NL26590

PATIENT
  Sex: Female

DRUGS (1)
  1. FEMARA [Suspect]
     Indication: BREAST CANCER
     Dosage: 2.5 MG/DAY

REACTIONS (15)
  - ALOPECIA [None]
  - AMNESIA [None]
  - ARTHRALGIA [None]
  - ASTHENIA [None]
  - BONE FISSURE [None]
  - BONE PAIN [None]
  - CARDIAC DISORDER [None]
  - CHEST PAIN [None]
  - COGNITIVE DISORDER [None]
  - DRY SKIN [None]
  - FLUSHING [None]
  - LYMPHOEDEMA [None]
  - MUCOSAL DRYNESS [None]
  - OSTEOPOROSIS [None]
  - RIB FRACTURE [None]
